FAERS Safety Report 8334784-7 (Version None)
Quarter: 2012Q2

REPORT INFORMATION
  Report Type: 
  Country: None (occurrence: None)
  Receive Date: 20120503
  Receipt Date: 20120501
  Transmission Date: 20120825
  Serious: Yes (Hospitalization)
  Sender: FDA-Public Use
  Company Number: US-AMGEN-USASP2012027411

PATIENT
  Age: 51 Year
  Sex: Female
  Weight: 75 kg

DRUGS (7)
  1. CARBOPLATIN [Suspect]
     Indication: BREAST CANCER
     Dosage: UNK UNK, PER CHEMO REGIM
     Route: 042
     Dates: start: 20110526
  2. PEGFILGRASTIM [Suspect]
     Indication: BREAST CANCER
     Dosage: 6 MG, UNK
     Dates: start: 20110526
  3. DOXORUBICIN HCL [Suspect]
     Indication: BREAST CANCER
     Dosage: 60 MG/M2, PER CHEMO REGIM
     Route: 042
     Dates: start: 20110526
  4. PACLITAXEL [Suspect]
     Indication: BREAST CANCER
     Dosage: 80 MG/M2, PER CHEMO REGIM
     Route: 042
     Dates: start: 20110526
  5. DEXAMETHASONE [Suspect]
     Indication: BREAST CANCER
     Dosage: 10 MG, UNK
     Dates: start: 20110526
  6. BEVACIZUMAB [Suspect]
     Indication: BREAST CANCER
     Dosage: 10 MG/KG, PER CHEMO REGIM
     Dates: start: 20110526
  7. CYCLOPHOSPHAMIDE [Suspect]
     Indication: BREAST CANCER
     Dosage: 600 MG/M2, PER CHEMO REGIM
     Route: 042
     Dates: start: 20110526

REACTIONS (1)
  - WOUND INFECTION [None]
